FAERS Safety Report 7618108-6 (Version None)
Quarter: 2011Q3

REPORT INFORMATION
  Report Type: 
  Country: None (occurrence: None)
  Receive Date: 20110718
  Receipt Date: 20110710
  Transmission Date: 20111222
  Serious: Yes (Other)
  Sender: FDA-Public Use
  Company Number: US-US-EMD SERONO, INC.-7069100

PATIENT
  Sex: Female

DRUGS (15)
  1. BACLOFEN [Concomitant]
     Route: 048
  2. CORDRAN [Concomitant]
  3. PRILOSEC OTC [Concomitant]
     Route: 048
  4. PREDNISONE [Concomitant]
     Route: 048
  5. PREDNISONE [Concomitant]
  6. GABAPENTIN [Concomitant]
     Route: 048
  7. UROGESIC BLUE [Concomitant]
     Route: 048
  8. CYMBALTA [Concomitant]
  9. OXYCONTIN XR [Concomitant]
     Route: 048
  10. BONIVA [Concomitant]
  11. TRIAZOLAM [Concomitant]
     Indication: PRODUCT USED FOR UNKNOWN INDICATION
  12. REBIF [Suspect]
     Indication: MULTIPLE SCLEROSIS
     Route: 058
     Dates: start: 20070911
  13. MECLIZINE [Concomitant]
     Route: 048
  14. REBIF [Suspect]
     Route: 058
  15. NITROFURANTOIN MACROCRYSTAL [Concomitant]
     Route: 048

REACTIONS (2)
  - TRIGEMINAL NEURALGIA [None]
  - PULMONARY MASS [None]
